FAERS Safety Report 8069545-X (Version None)
Quarter: 2012Q1

REPORT INFORMATION
  Report Type: 
  Country: None (occurrence: None)
  Receive Date: 20120125
  Receipt Date: 20120118
  Transmission Date: 20120608
  Serious: Yes (Hospitalization)
  Sender: FDA-Public Use
  Company Number: US-JNJFOC-20110706640

PATIENT
  Sex: Female

DRUGS (3)
  1. NORVASC [Concomitant]
     Indication: HYPERTENSION
     Route: 048
  2. ORTHO EVRA [Suspect]
     Indication: CONTRACEPTION
     Route: 062
     Dates: start: 20050101, end: 20090101
  3. MAXALT [Concomitant]
     Indication: MIGRAINE
     Route: 048

REACTIONS (7)
  - CEREBROVASCULAR ACCIDENT [None]
  - DIZZINESS [None]
  - VISUAL FIELD DEFECT [None]
  - COGNITIVE DISORDER [None]
  - DYSPHAGIA [None]
  - HEMIPLEGIA [None]
  - DEPRESSION [None]
